FAERS Safety Report 16971644 (Version 1)
Quarter: 2019Q4

REPORT INFORMATION
  Report Type: Report from Study
  Country: US (occurrence: US)
  Receive Date: 20191029
  Receipt Date: 20191029
  Transmission Date: 20200122
  Serious: Yes (Hospitalization)
  Sender: FDA-Public Use
  Company Number: US-JNJFOC-20191032470

PATIENT
  Age: 83 Year
  Sex: Male

DRUGS (25)
  1. VITAMIN B12 [Concomitant]
     Active Substance: CYANOCOBALAMIN
  2. FLORANEX [Concomitant]
     Active Substance: LACTOBACILLUS ACIDOPHILUS\LACTOBACILLUS DELBRUECKII SUBSP. BULGARICUS
  3. KLOR-CON [Concomitant]
     Active Substance: POTASSIUM CHLORIDE
  4. FENTANYL. [Concomitant]
     Active Substance: FENTANYL
     Indication: CANCER PAIN
  5. AUGMENTIN [Concomitant]
     Active Substance: AMOXICILLIN\CLAVULANATE POTASSIUM
  6. FENTANYL. [Concomitant]
     Active Substance: FENTANYL
     Indication: PAIN
  7. AMIODARONE HCL [Concomitant]
     Active Substance: AMIODARONE HYDROCHLORIDE
  8. METOPROLOL TARTRATE. [Concomitant]
     Active Substance: METOPROLOL TARTRATE
  9. ALLOPURINOL. [Concomitant]
     Active Substance: ALLOPURINOL
  10. CALTRATE 600+D [Concomitant]
  11. ACETAMINOPHEN. [Concomitant]
     Active Substance: ACETAMINOPHEN
  12. ASPIRIN                            /00002701/ [Concomitant]
     Active Substance: ASPIRIN
  13. FENTANYL. [Concomitant]
     Active Substance: FENTANYL
     Indication: PAIN
  14. LEVOFLOXACIN. [Concomitant]
     Active Substance: LEVOFLOXACIN
  15. PRILOSEC [Concomitant]
     Active Substance: OMEPRAZOLE MAGNESIUM
  16. ZYRTEC [Concomitant]
     Active Substance: CETIRIZINE HYDROCHLORIDE
  17. IMBRUVICA [Suspect]
     Active Substance: IBRUTINIB
     Indication: CHRONIC LYMPHOCYTIC LEUKAEMIA
     Dosage: 280 MG, QD
     Route: 048
     Dates: start: 20190829
  18. ADVIL (MEFENAMIC ACID) [Concomitant]
     Active Substance: MEFENAMIC ACID
  19. ELIQUIS [Concomitant]
     Active Substance: APIXABAN
  20. STOOL SOFTENER (DOCUSATE) [Concomitant]
     Active Substance: DOCUSATE
  21. PROBIOTIC                          /06395501/ [Concomitant]
     Active Substance: BIFIDOBACTERIUM ANIMALIS LACTIS
  22. SINGULAIR [Concomitant]
     Active Substance: MONTELUKAST SODIUM
  23. VITAMIN C [Concomitant]
     Active Substance: ASCORBIC ACID
  24. ZINC GLUCONATE [Concomitant]
     Active Substance: ZINC GLUCONATE
  25. MEGACE ORAL [Concomitant]

REACTIONS (5)
  - Nausea [Recovered/Resolved]
  - Diarrhoea [Recovered/Resolved]
  - Pneumonia [Unknown]
  - Incorrect dose administered [Unknown]
  - Blood blister [Unknown]

NARRATIVE: CASE EVENT DATE: 2019
